FAERS Safety Report 5802489-X (Version None)
Quarter: 2008Q2

REPORT INFORMATION
  Report Type: 
  Country: None (occurrence: None)
  Receive Date: 20080630
  Receipt Date: 20070718
  Transmission Date: 20081010
  Serious: Yes (Other)
  Sender: FDA-Public Use
  Company Number: 158986USA

PATIENT
  Age: 39 Year
  Sex: Male

DRUGS (1)
  1. PHENOXYMETHYLPENICILLIN [Suspect]

REACTIONS (2)
  - ANAPHYLACTIC SHOCK [None]
  - POST-TRAUMATIC STRESS DISORDER [None]
